FAERS Safety Report 17290939 (Version 2)
Quarter: 2020Q1

REPORT INFORMATION
  Report Type: Spontaneous
  Country: US (occurrence: US)
  Receive Date: 20200121
  Receipt Date: 20200217
  Transmission Date: 20200409
  Serious: Yes (Other)
  Sender: FDA-Public Use
  Company Number: US-BAYER-2019-221989

PATIENT
  Age: 55 Year
  Sex: Female
  Weight: 57.6 kg

DRUGS (2)
  1. MIRENA [Suspect]
     Active Substance: LEVONORGESTREL
     Indication: CONTRACEPTION
     Dosage: 20 MCG/24HR, CONT
     Route: 015
     Dates: start: 20150316, end: 20200128
  2. MIRENA [Suspect]
     Active Substance: LEVONORGESTREL
     Indication: MENORRHAGIA

REACTIONS (4)
  - Device breakage [Recovered/Resolved]
  - Embedded device [Recovered/Resolved]
  - Uterine leiomyoma [None]
  - Complication of device removal [None]

NARRATIVE: CASE EVENT DATE: 20191119
